FAERS Safety Report 14072404 (Version 1)
Quarter: 2017Q4

REPORT INFORMATION
  Report Type: Spontaneous
  Country: US (occurrence: None)
  Receive Date: 20171010
  Receipt Date: 20171010
  Transmission Date: 20180321
  Serious: Yes (Hospitalization)
  Sender: FDA-Public Use
  Company Number: None

PATIENT
  Age: 55 Year
  Sex: Male

DRUGS (10)
  1. DEMADEX [Concomitant]
     Active Substance: TORSEMIDE
  2. RENVELA [Concomitant]
     Active Substance: SEVELAMER CARBONATE
  3. PRO STAT [Concomitant]
  4. SENOKOT [Concomitant]
     Active Substance: SENNOSIDES
  5. INLYTA [Suspect]
     Active Substance: AXITINIB
     Indication: RENAL CANCER
     Dosage: 1APR2017 / DC^D
     Route: 048
     Dates: start: 20170401
  6. TRIPLE ANTIB [Concomitant]
  7. HUMALOG [Concomitant]
     Active Substance: INSULIN LISPRO
  8. IPRATROPIUM [Concomitant]
     Active Substance: IPRATROPIUM
  9. ZYLOPRIM [Concomitant]
     Active Substance: ALLOPURINOL
  10. KEPPRA [Concomitant]
     Active Substance: LEVETIRACETAM

REACTIONS (1)
  - Disease complication [None]

NARRATIVE: CASE EVENT DATE: 201709
